FAERS Safety Report 18350666 (Version 15)
Quarter: 2022Q1

REPORT INFORMATION
  Report Type: Report from Study
  Country: US (occurrence: US)
  Receive Date: 20201006
  Receipt Date: 20220301
  Transmission Date: 20220424
  Serious: Yes (Other)
  Sender: FDA-Public Use
  Company Number: NVSC2020US267716

PATIENT
  Age: 21 Month
  Sex: Female
  Weight: 12.2 kg

DRUGS (43)
  1. ZOLGENSMA [Suspect]
     Active Substance: ONASEMNOGENE ABEPARVOVEC-XIOI
     Indication: Spinal muscular atrophy
     Dosage: 1.1 X E14VG/KG, ONCE/SINGLE
     Route: 042
     Dates: start: 20200602
  2. PREDNISOLONE [Concomitant]
     Active Substance: PREDNISOLONE
     Indication: Prophylaxis
     Dosage: 1 MG/KG
     Route: 065
     Dates: start: 20200601, end: 20200702
  3. PREDNISOLONE [Concomitant]
     Active Substance: PREDNISOLONE
     Dosage: 4.1 ML
     Route: 065
     Dates: start: 20200702, end: 20200703
  4. PREDNISOLONE [Concomitant]
     Active Substance: PREDNISOLONE
     Dosage: 4 ML
     Route: 065
     Dates: start: 20200703, end: 20200704
  5. PREDNISOLONE [Concomitant]
     Active Substance: PREDNISOLONE
     Dosage: 3.9 ML
     Route: 065
     Dates: start: 20200704, end: 20200705
  6. PREDNISOLONE [Concomitant]
     Active Substance: PREDNISOLONE
     Dosage: 3.8 ML
     Route: 065
     Dates: start: 20200705, end: 20200706
  7. PREDNISOLONE [Concomitant]
     Active Substance: PREDNISOLONE
     Dosage: 3.7 ML
     Route: 065
     Dates: start: 20200706, end: 20200707
  8. PREDNISOLONE [Concomitant]
     Active Substance: PREDNISOLONE
     Dosage: 3.6 ML
     Route: 065
     Dates: start: 20200707, end: 20200708
  9. PREDNISOLONE [Concomitant]
     Active Substance: PREDNISOLONE
     Dosage: 3.5 ML
     Route: 065
     Dates: start: 20200708, end: 20200709
  10. PREDNISOLONE [Concomitant]
     Active Substance: PREDNISOLONE
     Dosage: 3.4 ML
     Route: 065
     Dates: start: 20200709, end: 20200710
  11. PREDNISOLONE [Concomitant]
     Active Substance: PREDNISOLONE
     Dosage: 3.3 ML
     Route: 065
     Dates: start: 20200710, end: 20200711
  12. PREDNISOLONE [Concomitant]
     Active Substance: PREDNISOLONE
     Dosage: 3.2 ML
     Route: 065
     Dates: start: 20200711, end: 20200712
  13. PREDNISOLONE [Concomitant]
     Active Substance: PREDNISOLONE
     Dosage: 3.1 ML
     Route: 065
     Dates: start: 20200712, end: 20200713
  14. PREDNISOLONE [Concomitant]
     Active Substance: PREDNISOLONE
     Dosage: 3 ML
     Route: 065
     Dates: start: 20200713, end: 20200714
  15. PREDNISOLONE [Concomitant]
     Active Substance: PREDNISOLONE
     Dosage: 2.9 ML
     Route: 065
     Dates: start: 20200714, end: 20200715
  16. PREDNISOLONE [Concomitant]
     Active Substance: PREDNISOLONE
     Dosage: 2.8 ML
     Route: 065
     Dates: start: 20200715, end: 20200716
  17. PREDNISOLONE [Concomitant]
     Active Substance: PREDNISOLONE
     Dosage: 2.7 ML
     Route: 065
     Dates: start: 20200716, end: 20200717
  18. PREDNISOLONE [Concomitant]
     Active Substance: PREDNISOLONE
     Dosage: 2.6 ML
     Route: 065
     Dates: start: 20200717, end: 20200718
  19. PREDNISOLONE [Concomitant]
     Active Substance: PREDNISOLONE
     Dosage: 2.5 ML
     Route: 065
     Dates: start: 20200718, end: 20200719
  20. PREDNISOLONE [Concomitant]
     Active Substance: PREDNISOLONE
     Dosage: 2.4 ML
     Route: 065
     Dates: start: 20200719, end: 20200720
  21. PREDNISOLONE [Concomitant]
     Active Substance: PREDNISOLONE
     Dosage: 2.3 ML
     Route: 065
     Dates: start: 20200720, end: 20200721
  22. PREDNISOLONE [Concomitant]
     Active Substance: PREDNISOLONE
     Dosage: 2.2 ML
     Route: 065
     Dates: start: 20200721, end: 20200722
  23. PREDNISOLONE [Concomitant]
     Active Substance: PREDNISOLONE
     Dosage: 2.1 ML
     Route: 065
     Dates: start: 20200722, end: 20200723
  24. PREDNISOLONE [Concomitant]
     Active Substance: PREDNISOLONE
     Dosage: 2 ML
     Route: 065
     Dates: start: 20200723, end: 20200724
  25. PREDNISOLONE [Concomitant]
     Active Substance: PREDNISOLONE
     Dosage: 1.9 ML
     Route: 065
     Dates: start: 20200724, end: 20200725
  26. PREDNISOLONE [Concomitant]
     Active Substance: PREDNISOLONE
     Dosage: 1.8 ML
     Route: 065
     Dates: start: 20200725, end: 20200726
  27. PREDNISOLONE [Concomitant]
     Active Substance: PREDNISOLONE
     Dosage: 1.7 ML
     Route: 065
     Dates: start: 20200726, end: 20200727
  28. PREDNISOLONE [Concomitant]
     Active Substance: PREDNISOLONE
     Dosage: 1.6 ML
     Route: 065
     Dates: start: 20200727, end: 20200728
  29. PREDNISOLONE [Concomitant]
     Active Substance: PREDNISOLONE
     Dosage: 1.5 ML
     Route: 065
     Dates: start: 20200728, end: 20200729
  30. PREDNISOLONE [Concomitant]
     Active Substance: PREDNISOLONE
     Dosage: 1.4 ML
     Route: 065
     Dates: start: 20200729, end: 20200730
  31. PREDNISOLONE [Concomitant]
     Active Substance: PREDNISOLONE
     Dosage: 1.3 ML
     Route: 065
     Dates: start: 20200730, end: 20200731
  32. PREDNISOLONE [Concomitant]
     Active Substance: PREDNISOLONE
     Dosage: 1.2 ML
     Route: 065
     Dates: start: 20200731, end: 20200801
  33. PREDNISOLONE [Concomitant]
     Active Substance: PREDNISOLONE
     Dosage: 1.1 ML
     Route: 065
     Dates: start: 20200801, end: 20200802
  34. PREDNISOLONE [Concomitant]
     Active Substance: PREDNISOLONE
     Dosage: 1 ML
     Route: 065
     Dates: start: 20200802, end: 20200803
  35. PREDNISOLONE [Concomitant]
     Active Substance: PREDNISOLONE
     Dosage: 0.9 ML
     Route: 065
     Dates: start: 20200803, end: 20200804
  36. PREDNISOLONE [Concomitant]
     Active Substance: PREDNISOLONE
     Dosage: 0.8 ML
     Route: 065
     Dates: start: 20200804, end: 20200805
  37. PREDNISOLONE [Concomitant]
     Active Substance: PREDNISOLONE
     Dosage: 0.7 ML
     Route: 065
     Dates: start: 20200805, end: 20200806
  38. PREDNISOLONE [Concomitant]
     Active Substance: PREDNISOLONE
     Dosage: 0.6 ML
     Route: 065
     Dates: start: 20200806, end: 20200807
  39. PREDNISOLONE [Concomitant]
     Active Substance: PREDNISOLONE
     Dosage: 0.5 ML
     Route: 065
     Dates: start: 20200807, end: 20200808
  40. PREDNISOLONE [Concomitant]
     Active Substance: PREDNISOLONE
     Dosage: 0.4 ML
     Route: 065
     Dates: start: 20200808, end: 20200809
  41. PREDNISOLONE [Concomitant]
     Active Substance: PREDNISOLONE
     Dosage: 0.3 ML
     Route: 065
     Dates: start: 20200809, end: 20200810
  42. PREDNISOLONE [Concomitant]
     Active Substance: PREDNISOLONE
     Dosage: 0.2 ML
     Route: 065
     Dates: start: 20200810, end: 20200811
  43. PREDNISOLONE [Concomitant]
     Active Substance: PREDNISOLONE
     Dosage: 0.1 ML
     Route: 065
     Dates: start: 20200811, end: 20200812

REACTIONS (13)
  - Thrombocytopenia [Recovered/Resolved]
  - White blood cell count decreased [Recovered/Resolved]
  - Hyperglycaemia [Recovered/Resolved]
  - Troponin increased [Recovered/Resolved]
  - Troponin I increased [Recovered/Resolved]
  - Pyrexia [Recovered/Resolved]
  - Aspartate aminotransferase increased [Recovered/Resolved]
  - Alanine aminotransferase increased [Recovered/Resolved]
  - Constipation [Recovered/Resolved]
  - Vomiting [Recovered/Resolved]
  - SARS-CoV-2 test positive [Recovered/Resolved]
  - Upper respiratory tract infection [Recovered/Resolved]
  - Respiratory syncytial virus infection [Recovered/Resolved]

NARRATIVE: CASE EVENT DATE: 20200603
